FAERS Safety Report 15968745 (Version 1)
Quarter: 2019Q1

REPORT INFORMATION
  Report Type: Spontaneous
  Country: US (occurrence: US)
  Receive Date: 20190215
  Receipt Date: 20190215
  Transmission Date: 20190418
  Serious: No
  Sender: FDA-Public Use
  Company Number: US-TEVA-2019-US-1001789

PATIENT
  Sex: Female

DRUGS (1)
  1. TEVA NYSTATIN [Suspect]
     Active Substance: NYSTATIN
     Dosage: DOSE STRENGTH:  500,000 UNITS
     Route: 048
     Dates: end: 20190103

REACTIONS (1)
  - Hypersensitivity [Unknown]
